FAERS Safety Report 5841147-2 (Version None)
Quarter: 2008Q3

REPORT INFORMATION
  Report Type: 
  Country: None (occurrence: None)
  Receive Date: 20080807
  Receipt Date: 20080807
  Transmission Date: 20090109
  Serious: Yes (Hospitalization)
  Sender: FDA-Public Use
  Company Number: None

PATIENT
  Age: 65 Year
  Sex: Male
  Weight: 88.2 kg

DRUGS (11)
  1. CLOFARABINE  80MG/80ML  AAIPHARMA INC. [Suspect]
     Indication: ACUTE MYELOID LEUKAEMIA
     Dosage: 80MG/80ML Q 24 HOURS IV
     Route: 042
     Dates: start: 20080711, end: 20080715
  2. CYTARABINE [Suspect]
     Dosage: 2 GRAMS DAILY X5 DAYS IV
     Route: 042
     Dates: start: 20080711, end: 20080715
  3. AMBISOME [Concomitant]
  4. MEROPENEM [Concomitant]
  5. LORAZEPAM [Concomitant]
  6. ZETIA [Concomitant]
  7. NEXIUM [Concomitant]
  8. ZOLPIDEM [Concomitant]
  9. CASPOFUNGIN [Concomitant]
  10. ZYVOX [Concomitant]
  11. ACTIVASE [Concomitant]

REACTIONS (5)
  - DISCOMFORT [None]
  - ERYTHEMA [None]
  - PAIN [None]
  - RASH GENERALISED [None]
  - SKIN WARM [None]
